FAERS Safety Report 12121290 (Version 1)
Quarter: 2016Q1

REPORT INFORMATION
  Report Type: Spontaneous
  Country: US (occurrence: US)
  Receive Date: 20160226
  Receipt Date: 20160226
  Transmission Date: 20160526
  Serious: No
  Sender: FDA-Public Use
  Company Number: US-ALLERGAN-1420416US

PATIENT
  Age: 90 Year
  Sex: Female

DRUGS (5)
  1. REFRESH OPTIVE SENSITIVE [Suspect]
     Active Substance: CARBOXYMETHYLCELLULOSE SODIUM\GLYCERIN
     Indication: DRY EYE
     Dosage: 1 VIAL
     Route: 047
     Dates: start: 20140918
  2. VITAMIN D                          /00107901/ [Concomitant]
     Active Substance: ERGOCALCIFEROL
     Dosage: UNK
  3. B-50                               /02318301/ [Concomitant]
     Dosage: UNK
  4. MVI [Concomitant]
     Active Substance: VITAMINS
     Dosage: UNK
  5. MOBIC [Concomitant]
     Active Substance: MELOXICAM
     Indication: ARTHRITIS
     Dosage: UNK

REACTIONS (2)
  - Incorrect dose administered [Unknown]
  - Vision blurred [Unknown]
